FAERS Safety Report 7642838-3 (Version None)
Quarter: 2011Q3

REPORT INFORMATION
  Report Type: 
  Country: None (occurrence: None)
  Receive Date: 20110728
  Receipt Date: 20110719
  Transmission Date: 20111222
  Serious: Yes (Death)
  Sender: FDA-Public Use
  Company Number: US-BAXTER-2011BH023402

PATIENT
  Sex: Female

DRUGS (1)
  1. DIANEAL [Suspect]
     Indication: PERITONEAL DIALYSIS
     Route: 033

REACTIONS (7)
  - UNEVALUABLE EVENT [None]
  - DEATH [None]
  - DEVICE LEAKAGE [None]
  - VOMITING [None]
  - NAUSEA [None]
  - MALAISE [None]
  - ABDOMINAL DISTENSION [None]
